FAERS Safety Report 9415488 (Version 2)
Quarter: 2013Q3

REPORT INFORMATION
  Report Type: Spontaneous
  Country: US (occurrence: US)
  Receive Date: 20130723
  Receipt Date: 20130927
  Transmission Date: 20140515
  Serious: Yes (Other)
  Sender: FDA-Public Use
  Company Number: US-ELI_LILLY_AND_COMPANY-US201307005899

PATIENT
  Sex: Female

DRUGS (2)
  1. HUMALOG 25% LISPRO, 75% NPL [Suspect]
     Dosage: UNK
     Dates: start: 2000
  2. HUMULIN 30% REGULAR, 70% NPH [Suspect]
     Dosage: UNK

REACTIONS (6)
  - Breast cancer [Unknown]
  - Osteoarthritis [Unknown]
  - Poor peripheral circulation [Unknown]
  - Accident [Unknown]
  - Skin atrophy [Unknown]
  - Drug dispensing error [Unknown]
